FAERS Safety Report 10241518 (Version 2)
Quarter: 2014Q2

REPORT INFORMATION
  Report Type: Spontaneous
  Country: US (occurrence: US)
  Receive Date: 20140617
  Receipt Date: 20140617
  Transmission Date: 20141212
  Serious: Yes (Hospitalization, Other)
  Sender: FDA-Public Use
  Company Number: US-009507513-2011SP049324

PATIENT
  Sex: Female
  Weight: 90.7 kg

DRUGS (4)
  1. NUVARING [Suspect]
     Indication: CONTRACEPTION
     Route: 067
     Dates: start: 20100512, end: 20100615
  2. NUVARING [Suspect]
     Indication: CONTRACEPTION
  3. PROVENTIL [Concomitant]
     Indication: ASTHMA
     Dosage: 2 PUFFS (AVERAGE 3X/WK)
     Route: 055
     Dates: start: 2001
  4. RITALIN [Concomitant]
     Indication: ATTENTION DEFICIT/HYPERACTIVITY DISORDER
     Dosage: 20 MG, TID
     Route: 048
     Dates: start: 2004

REACTIONS (2)
  - Pulmonary embolism [Recovering/Resolving]
  - Gonorrhoea [Unknown]
